FAERS Safety Report 8958635 (Version 1)
Quarter: 2012Q4

REPORT INFORMATION
  Report Type: Spontaneous
  Country: US (occurrence: None)
  Receive Date: 20121203
  Receipt Date: 20121203
  Transmission Date: 20130627
  Serious: Yes (Other)
  Sender: FDA-Public Use
  Company Number: 120505

PATIENT
  Age: 65 Year
  Sex: Female

DRUGS (2)
  1. SUPREP BOWEL PREP KIT [Suspect]
     Indication: COLONOSCOPY
     Route: 048
     Dates: start: 20121120
  2. SYNTHROID [Concomitant]

REACTIONS (6)
  - Headache [None]
  - Disorientation [None]
  - Fall [None]
  - Hyperhidrosis [None]
  - Palpitations [None]
  - Balance disorder [None]
